FAERS Safety Report 12489087 (Version 5)
Quarter: 2016Q3

REPORT INFORMATION
  Report Type: Spontaneous
  Country: GB (occurrence: GB)
  Receive Date: 20160622
  Receipt Date: 20160824
  Transmission Date: 20161109
  Serious: Yes (Hospitalization, Other)
  Sender: FDA-Public Use
  Company Number: GB-BAYER-2016-117686

PATIENT
  Age: 83 Year
  Sex: Male

DRUGS (4)
  1. RED BLOOD CELLS [Concomitant]
     Active Substance: HUMAN RED BLOOD CELL
     Dosage: 2 UNITS
  2. XOFIGO [Suspect]
     Active Substance: RADIUM RA-223 DICHLORIDE
     Indication: HORMONE-REFRACTORY PROSTATE CANCER
     Dosage: UNK
     Dates: start: 20160726
  3. XOFIGO [Suspect]
     Active Substance: RADIUM RA-223 DICHLORIDE
     Indication: HORMONE-REFRACTORY PROSTATE CANCER
     Dosage: TOTAL DAILY DOSE 3.8 MBQ
     Route: 042
     Dates: start: 20160524
  4. XOFIGO [Suspect]
     Active Substance: RADIUM RA-223 DICHLORIDE
     Indication: HORMONE-REFRACTORY PROSTATE CANCER
     Dosage: UNK
     Dates: start: 20160628

REACTIONS (9)
  - Confusional state [None]
  - Sepsis [None]
  - Pyrexia [None]
  - Lower respiratory tract infection [Recovered/Resolved]
  - Rales [None]
  - Hypercalcaemia [None]
  - Pneumonia [None]
  - Lower respiratory tract infection [None]
  - Cough [None]

NARRATIVE: CASE EVENT DATE: 2016
